FAERS Safety Report 12172690 (Version 2)
Quarter: 2016Q2

REPORT INFORMATION
  Report Type: Other
  Country: US (occurrence: US)
  Receive Date: 20160311
  Receipt Date: 20160421
  Transmission Date: 20160815
  Serious: Yes (Hospitalization)
  Sender: FDA-Public Use
  Company Number: US-SHIRE-US-002436

PATIENT
  Age: 58 Year
  Sex: Female

DRUGS (2)
  1. LIPIDS NOS W/PROTEINS NOS/VITAMINS NOS [Concomitant]
     Active Substance: AMINO ACIDS\SOYBEAN OIL\VITAMINS
     Indication: MEDICAL DIET
     Dosage: UNK
  2. GATTEX [Suspect]
     Active Substance: TEDUGLUTIDE\WATER
     Indication: SHORT-BOWEL SYNDROME
     Dosage: UNK, 1X/DAY:QD
     Route: 058
     Dates: start: 20150730

REACTIONS (6)
  - Abdominal pain [Recovered/Resolved]
  - Burning sensation [Unknown]
  - Abdominal discomfort [Unknown]
  - Road traffic accident [Unknown]
  - Vomiting [Recovered/Resolved]
  - Arthralgia [Unknown]

NARRATIVE: CASE EVENT DATE: 2015
